FAERS Safety Report 16730873 (Version 1)
Quarter: 2019Q3

REPORT INFORMATION
  Report Type: Report from Study
  Country: TH (occurrence: TH)
  Receive Date: 20190822
  Receipt Date: 20190822
  Transmission Date: 20191005
  Serious: Yes (Other)
  Sender: FDA-Public Use
  Company Number: PHHY2019TH192045

PATIENT
  Sex: Female

DRUGS (1)
  1. AFINITOR [Suspect]
     Active Substance: EVEROLIMUS
     Indication: BREAST CANCER
     Dosage: 10 MG, UNK
     Route: 048

REACTIONS (10)
  - Diabetes mellitus [Unknown]
  - Therapeutic response decreased [Unknown]
  - Food intolerance [Unknown]
  - Drug intolerance [Unknown]
  - Second primary malignancy [Unknown]
  - Skin discolouration [Unknown]
  - Lung neoplasm malignant [Unknown]
  - Lip oedema [Unknown]
  - Eye oedema [Unknown]
  - Cardiac disorder [Unknown]
